FAERS Safety Report 4457112-6 (Version None)
Quarter: 2004Q3

REPORT INFORMATION
  Report Type: 
  Country: None (occurrence: None)
  Receive Date: 20040923
  Receipt Date: 20040712
  Transmission Date: 20050211
  Serious: Yes (Hospitalization)
  Sender: FDA-Public Use
  Company Number: FR-ABBOTT-04P-056-0266865-00

PATIENT
  Age: 34 Year
  Sex: Male
  Weight: 61 kg

DRUGS (5)
  1. NORVIR [Suspect]
     Indication: HIV INFECTION
     Route: 048
  2. SAQUINAVIR [Suspect]
     Indication: HIV INFECTION
     Route: 048
  3. LAMIVUDINE [Suspect]
     Indication: HIV INFECTION
     Route: 048
  4. ABACAVIR [Suspect]
     Indication: HIV INFECTION
     Route: 048
  5. GABAPENTIN [Concomitant]
     Indication: DRUG USE FOR UNKNOWN INDICATION
     Route: 048

REACTIONS (7)
  - ANXIETY [None]
  - BASEDOW'S DISEASE [None]
  - EYE DISORDER [None]
  - EYE IRRITATION [None]
  - MUSCULAR WEAKNESS [None]
  - NIGHTMARE [None]
  - REFLEXES ABNORMAL [None]
